FAERS Safety Report 4411294-0 (Version None)
Quarter: 2004Q2

REPORT INFORMATION
  Report Type: 
  Country: None (occurrence: None)
  Receive Date: 20040630
  Receipt Date: 20040503
  Transmission Date: 20050107
  Serious: No
  Sender: FDA-Public Use
  Company Number: 04P-163-0259392-00

PATIENT
  Age: 82 Year
  Sex: Female
  Weight: 34.0198 kg

DRUGS (5)
  1. HUMIRA [Suspect]
     Indication: RHEUMATOID ARTHRITIS
     Dosage: 40 MG, 1 IN 2 WK, SUBCUTANEOUS
     Route: 058
     Dates: start: 20040421
  2. MELOXICAM [Concomitant]
  3. PREDNISONE [Concomitant]
  4. MULTIVITAMIN [Concomitant]
  5. LORAZEPAM [Concomitant]

REACTIONS (1)
  - PRURITUS [None]
